FAERS Safety Report 9340594 (Version 1)
Quarter: 2013Q2

REPORT INFORMATION
  Report Type: Spontaneous
  Country: CA (occurrence: CA)
  Receive Date: 20130610
  Receipt Date: 20130610
  Transmission Date: 20140414
  Serious: Yes (Other)
  Sender: FDA-Public Use
  Company Number: PHHY2013CA057913

PATIENT
  Age: 23 Year
  Sex: Male

DRUGS (6)
  1. SIMULECT [Suspect]
  2. METHYLPREDNISOLONE SANDOZ [Suspect]
  3. MYCOPHENOLATE MOFETIL [Suspect]
  4. PREDNISONE [Suspect]
     Route: 048
  5. TACROLIMUS [Suspect]
  6. BACTRIM [Concomitant]

REACTIONS (2)
  - Pneumocystis jirovecii pneumonia [Unknown]
  - Transplant rejection [Unknown]
